FAERS Safety Report 11290368 (Version 3)
Quarter: 2015Q3

REPORT INFORMATION
  Report Type: Spontaneous
  Country: US (occurrence: US)
  Receive Date: 20150722
  Receipt Date: 20150821
  Transmission Date: 20151125
  Serious: Yes (Other)
  Sender: FDA-Public Use
  Company Number: US-ROCHE-1610247

PATIENT
  Age: 71 Year
  Sex: Female
  Weight: 59.93 kg

DRUGS (5)
  1. ESBRIET [Suspect]
     Active Substance: PIRFENIDONE
     Indication: IDIOPATHIC PULMONARY FIBROSIS
     Dosage: FULL DOSE OF 9 PILLS PER DAY
     Route: 048
     Dates: end: 20150723
  2. ESBRIET [Suspect]
     Active Substance: PIRFENIDONE
     Dosage: 6 PILLS DAILY
     Route: 048
     Dates: start: 20150723
  3. ESBRIET [Suspect]
     Active Substance: PIRFENIDONE
     Dosage: 3 CAPS
     Route: 048
     Dates: start: 20150304
  4. OMEPRAZOLE. [Concomitant]
     Active Substance: OMEPRAZOLE
     Route: 065
  5. PREDNISONE. [Concomitant]
     Active Substance: PREDNISONE

REACTIONS (4)
  - Rash [Recovered/Resolved]
  - Skin oedema [Recovered/Resolved]
  - Skin reaction [Recovered/Resolved]
  - Photosensitivity reaction [Unknown]

NARRATIVE: CASE EVENT DATE: 201506
